FAERS Safety Report 24593118 (Version 1)
Quarter: 2024Q4

REPORT INFORMATION
  Report Type: Spontaneous
  Country: US (occurrence: US)
  Receive Date: 20241108
  Receipt Date: 20241108
  Transmission Date: 20250114
  Serious: Yes (Hospitalization, Other)
  Sender: QUAGEN PHARMACEUTICALS
  Company Number: US-QUAGEN-2024QUALIT00364

PATIENT
  Age: 82 Year
  Sex: Male

DRUGS (8)
  1. TRIAMCINOLONE ACETONIDE [Suspect]
     Active Substance: TRIAMCINOLONE ACETONIDE
     Indication: Cystoid macular oedema
     Dosage: 20MG IN EACH EYE
  2. DARUNAVIR [Suspect]
     Active Substance: DARUNAVIR
     Indication: HIV infection
     Route: 065
  3. RITONAVIR [Suspect]
     Active Substance: RITONAVIR
     Indication: HIV infection
     Route: 065
  4. AMIODARONE [Suspect]
     Active Substance: AMIODARONE
     Indication: Cardiac failure congestive
     Route: 065
  5. FUROSEMIDE [Concomitant]
     Active Substance: FUROSEMIDE
     Indication: Hypertension
     Route: 065
  6. Insulin (Insulin NOS) [Concomitant]
     Indication: Type 1 diabetes mellitus
     Route: 065
  7. KETOROLAC [Concomitant]
     Active Substance: KETOROLAC TROMETHAMINE
     Indication: Cystoid macular oedema
     Route: 061
  8. PREDNISOLONE [Concomitant]
     Active Substance: PREDNISOLONE
     Indication: Cystoid macular oedema
     Route: 061

REACTIONS (4)
  - Cushing^s syndrome [Recovered/Resolved]
  - Drug interaction [Unknown]
  - Product use in unapproved indication [Unknown]
  - Product use issue [Unknown]
